FAERS Safety Report 17720514 (Version 1)
Quarter: 2020Q2

REPORT INFORMATION
  Report Type: Spontaneous
  Country: SE (occurrence: SE)
  Receive Date: 20200428
  Receipt Date: 20200428
  Transmission Date: 20200714
  Serious: Yes (Hospitalization, Other)
  Sender: FDA-Public Use
  Company Number: SE-JAZZ-2020-SE-005498

PATIENT
  Age: 20 Year
  Sex: Female

DRUGS (1)
  1. XYREM [Suspect]
     Active Substance: SODIUM OXYBATE
     Indication: NARCOLEPSY
     Dosage: UNK
     Route: 048
     Dates: end: 20200223

REACTIONS (7)
  - Intentional self-injury [Unknown]
  - Suicide attempt [Unknown]
  - Pulseless electrical activity [Recovered/Resolved]
  - Bundle branch block right [Recovered/Resolved]
  - Loss of consciousness [Recovered/Resolved]
  - Electrocardiogram PR prolongation [Recovered/Resolved]
  - Intentional overdose [Unknown]

NARRATIVE: CASE EVENT DATE: 2020
